FAERS Safety Report 24066084 (Version 1)
Quarter: 2024Q3

REPORT INFORMATION
  Report Type: Spontaneous
  Country: FR (occurrence: FR)
  Receive Date: 20240709
  Receipt Date: 20240709
  Transmission Date: 20241017
  Serious: Yes (Life-Threatening)
  Sender: ELI LILLY AND CO
  Company Number: None

PATIENT
  Age: 35 Year
  Sex: Female

DRUGS (7)
  1. DULOXETINE HYDROCHLORIDE [Suspect]
     Active Substance: DULOXETINE HYDROCHLORIDE
     Indication: Depression
     Dosage: UNK UNK, UNKNOWN
     Route: 048
  2. OXAZEPAM [Suspect]
     Active Substance: OXAZEPAM
     Indication: Depression
     Dosage: UNK, UNKNOWN
     Route: 048
  3. RAMIPRIL [Suspect]
     Active Substance: RAMIPRIL
     Indication: Hypertension
     Dosage: UNK, UNKNOWN
     Route: 048
  4. NEURONTIN [Suspect]
     Active Substance: GABAPENTIN
     Indication: Neuralgia
     Dosage: UNK UNK, UNKNOWN
     Route: 048
  5. CHLORAL HYDRATE\LIDOCAINE\THYMOL [Suspect]
     Active Substance: CHLORAL HYDRATE\LIDOCAINE\THYMOL
     Indication: Anaesthesia
     Dosage: UNK UNK, OTHER (VIA INTRASPINAL)
     Route: 065
     Dates: start: 20240304
  6. OXYCONTIN [Suspect]
     Active Substance: OXYCODONE HYDROCHLORIDE
     Indication: Pain
     Dosage: UNK, UNKNOWN
     Route: 048
  7. AMITRIPTYLINE HYDROCHLORIDE [Suspect]
     Active Substance: AMITRIPTYLINE HYDROCHLORIDE
     Indication: Depression
     Dosage: UNK, UNKNOWN
     Route: 048

REACTIONS (1)
  - Hypoglycaemic coma [Not Recovered/Not Resolved]

NARRATIVE: CASE EVENT DATE: 20240308
